FAERS Safety Report 25074076 (Version 1)
Quarter: 2025Q1

REPORT INFORMATION
  Report Type: Spontaneous
  Country: US (occurrence: US)
  Receive Date: 20250313
  Receipt Date: 20250313
  Transmission Date: 20250408
  Serious: Yes (Other)
  Sender: SANOFI AVENTIS
  Company Number: US-SA-2025SA074418

PATIENT
  Age: 61 Year
  Sex: Female
  Weight: 70.45 kg

DRUGS (17)
  1. DUPIXENT [Suspect]
     Active Substance: DUPILUMAB
     Indication: Asthma
     Dosage: 300 MG, QOW
     Route: 058
  2. VITAMINS [Concomitant]
     Active Substance: VITAMINS
  3. PERFOROMIST [Concomitant]
     Active Substance: FORMOTEROL FUMARATE DIHYDRATE
  4. BUDESONIDE [Concomitant]
     Active Substance: BUDESONIDE
  5. BUSPIRONE HCL [Concomitant]
     Active Substance: BUSPIRONE HYDROCHLORIDE
  6. GABAPENTIN [Concomitant]
     Active Substance: GABAPENTIN
  7. B12 ACTIVE [Concomitant]
  8. FOSINOPRIL SODIUM [Concomitant]
     Active Substance: FOSINOPRIL SODIUM
  9. VITAMIN D3 [Concomitant]
     Active Substance: CHOLECALCIFEROL
  10. OMEPRAZOLE [Concomitant]
     Active Substance: OMEPRAZOLE
  11. PRIMIDONE [Concomitant]
     Active Substance: PRIMIDONE
  12. ACYCLOVIR [Concomitant]
     Active Substance: ACYCLOVIR
  13. METHYLPREDNISOLONE [Concomitant]
     Active Substance: METHYLPREDNISOLONE
  14. VITAMIN E [Concomitant]
     Active Substance: .ALPHA.-TOCOPHEROL
  15. SINGULAIR [Concomitant]
     Active Substance: MONTELUKAST SODIUM
  16. XOLAIR [Concomitant]
     Active Substance: OMALIZUMAB
  17. DILTIAZEM 12HR [Concomitant]

REACTIONS (2)
  - Respiratory distress [Unknown]
  - Product use in unapproved indication [Unknown]

NARRATIVE: CASE EVENT DATE: 20240101
